FAERS Safety Report 14313623 (Version 1)
Quarter: 2017Q4

REPORT INFORMATION
  Report Type: Spontaneous
  Country: US (occurrence: US)
  Receive Date: 20171221
  Receipt Date: 20171221
  Transmission Date: 20180321
  Serious: Yes (Life-Threatening, Hospitalization)
  Sender: FDA-Public Use
  Company Number: US-ELI_LILLY_AND_COMPANY-US201712008614

PATIENT
  Age: 54 Year
  Sex: Female

DRUGS (1)
  1. HUMALOG [Suspect]
     Active Substance: INSULIN LISPRO
     Indication: TYPE 2 DIABETES MELLITUS
     Dosage: 14 U, UNKNOWN
     Route: 058

REACTIONS (3)
  - Diabetic ketoacidosis [Recovered/Resolved]
  - Coma [Recovered/Resolved]
  - Cardiac arrest [Recovered/Resolved]

NARRATIVE: CASE EVENT DATE: 20161025
